FAERS Safety Report 22156698 (Version 1)
Quarter: 2023Q1

REPORT INFORMATION
  Report Type: Spontaneous
  Country: US (occurrence: US)
  Receive Date: 20230330
  Receipt Date: 20230330
  Transmission Date: 20230417
  Serious: No
  Sender: FDA-Public Use
  Company Number: US-FreseniusKabi-FK202303611

PATIENT

DRUGS (3)
  1. DIPRIVAN [Suspect]
     Active Substance: PROPOFOL
     Indication: Sedation
     Dosage: TOTAL DOSE 500 MG
     Route: 042
     Dates: start: 20230315, end: 20230315
  2. DIPRIVAN [Suspect]
     Active Substance: PROPOFOL
     Dosage: TOTAL DOSE 500 MG
     Route: 042
     Dates: start: 20230315, end: 20230315
  3. DIPRIVAN [Suspect]
     Active Substance: PROPOFOL
     Dosage: TOTAL DOSE 500 MG
     Route: 042
     Dates: start: 20230315, end: 20230315

REACTIONS (2)
  - Therapeutic product effect decreased [Recovered/Resolved]
  - Bronchospasm [Recovered/Resolved]

NARRATIVE: CASE EVENT DATE: 20230315
